FAERS Safety Report 15774461 (Version 2)
Quarter: 2019Q1

REPORT INFORMATION
  Report Type: Spontaneous
  Country: RS (occurrence: RS)
  Receive Date: 20181229
  Receipt Date: 20190220
  Transmission Date: 20190417
  Serious: Yes (Death, Other)
  Sender: FDA-Public Use
  Company Number: RS-009507513-1812SRB012142

PATIENT
  Age: 96 Year
  Sex: Male

DRUGS (1)
  1. KEYTRUDA [Suspect]
     Active Substance: PEMBROLIZUMAB
     Indication: METASTATIC MALIGNANT MELANOMA
     Dosage: RECEIVED 28 CYCLES OF THERAPY
     Dates: start: 2017

REACTIONS (3)
  - Malignant neoplasm progression [Fatal]
  - Vitiligo [Unknown]
  - Death [Fatal]

NARRATIVE: CASE EVENT DATE: 2018
